FAERS Safety Report 6175374-4 (Version None)
Quarter: 2009Q2

REPORT INFORMATION
  Report Type: 
  Country: None (occurrence: None)
  Receive Date: 20090430
  Receipt Date: 20090407
  Transmission Date: 20091009
  Serious: Yes (Hospitalization, Disabling, Other)
  Sender: FDA-Public Use
  Company Number: FI-MERCK-0904FIN00003

PATIENT
  Age: 76 Year
  Sex: Male

DRUGS (3)
  1. ZOCOR [Suspect]
     Indication: MYOCARDIAL INFARCTION
     Route: 048
  2. PODOPHYLLOTOXIN SEMISYNTHETIC GLYCOSIDES [Suspect]
     Indication: RHEUMATOID ARTHRITIS
     Route: 048
  3. PREDNISOLONE [Concomitant]
     Indication: RHEUMATOID ARTHRITIS
     Route: 065

REACTIONS (4)
  - DRUG INTERACTION [None]
  - LUMBAR VERTEBRAL FRACTURE [None]
  - POLYNEUROPATHY [None]
  - RHABDOMYOLYSIS [None]
